FAERS Safety Report 8901133 (Version 1)
Quarter: 2012Q4

REPORT INFORMATION
  Report Type: 
  Country: JP (occurrence: JP)
  Receive Date: 20121109
  Receipt Date: 20121109
  Transmission Date: 20130627
  Serious: Yes (Other)
  Sender: FDA-Public Use
  Company Number: JP-ROCHE-1153414

PATIENT
  Age: 58 Year
  Sex: Male

DRUGS (2)
  1. XELODA [Suspect]
     Indication: RECTAL CANCER
     Dosage: Uncertain dosage and two cool
     Route: 048
     Dates: start: 201209, end: 2012
  2. ELPLAT [Concomitant]
     Indication: RECTAL CANCER
     Dosage: Uncertain dosage and two cool
     Route: 041
     Dates: start: 201209, end: 2012

REACTIONS (3)
  - Scrotal ulcer [Unknown]
  - Lip erosion [Unknown]
  - Skin erosion [Unknown]
